FAERS Safety Report 9656730 (Version 1)
Quarter: 2013Q4

REPORT INFORMATION
  Report Type: Spontaneous
  Country: US (occurrence: None)
  Receive Date: 20131029
  Receipt Date: 20131029
  Transmission Date: 20140711
  Serious: No
  Sender: FDA-Public Use
  Company Number: None

PATIENT
  Age: 63 Year
  Sex: Female
  Weight: 68.04 kg

DRUGS (1)
  1. LIDOCAINE [Suspect]
     Indication: ANALGESIC THERAPY
     Dosage: 2 PATCHES QD TOPICAL
     Route: 061
     Dates: start: 20131007, end: 20131028

REACTIONS (2)
  - Drug effect decreased [None]
  - Product substitution issue [None]
